FAERS Safety Report 8450657-3 (Version None)
Quarter: 2012Q2

REPORT INFORMATION
  Report Type: 
  Country: None (occurrence: None)
  Receive Date: 20120620
  Receipt Date: 20120608
  Transmission Date: 20120825
  Serious: Yes (Hospitalization, Other)
  Sender: FDA-Public Use
  Company Number: FR-JNJFOC-20120608315

PATIENT
  Sex: Male

DRUGS (3)
  1. PREDNISOLONE [Suspect]
     Indication: BACK PAIN
     Route: 048
     Dates: start: 20120509, end: 20120510
  2. TETRAZEPAM [Suspect]
     Indication: BACK PAIN
     Route: 048
     Dates: start: 20120509, end: 20120510
  3. ACETAMINOPHEN AND TRAMADOL HCL [Suspect]
     Indication: BACK PAIN
     Route: 048
     Dates: start: 20120509, end: 20120510

REACTIONS (2)
  - DELIRIUM [None]
  - OVERDOSE [None]
